FAERS Safety Report 9201370 (Version 1)
Quarter: 2013Q2

REPORT INFORMATION
  Report Type: Other
  Country: SG (occurrence: SG)
  Receive Date: 20130401
  Receipt Date: 20130401
  Transmission Date: 20140414
  Serious: Yes (Other)
  Sender: FDA-Public Use
  Company Number: SG-MPIJNJ-2012-09191

PATIENT
  Sex: 0

DRUGS (5)
  1. VELCADE [Suspect]
     Indication: PLASMA CELL MYELOMA
     Dosage: UNK, CYCLIC
     Dates: start: 20100301, end: 20100501
  2. VELCADE [Suspect]
     Dosage: UNK
  3. DEXAMETHASONE [Suspect]
     Indication: PRODUCT USED FOR UNKNOWN INDICATION
     Dosage: UNK
     Dates: start: 20100301
  4. CYCLOPHOSPHAMIDE [Suspect]
     Indication: PRODUCT USED FOR UNKNOWN INDICATION
     Dosage: UNK
     Dates: start: 20100501
  5. REVLIMID [Concomitant]
     Dosage: UNK
     Dates: start: 201003

REACTIONS (4)
  - Neurotoxicity [Unknown]
  - Disease progression [Unknown]
  - Light chain disease [Unknown]
  - Pancytopenia [Unknown]
